FAERS Safety Report 6111777-1 (Version None)
Quarter: 2009Q1

REPORT INFORMATION
  Report Type: 
  Country: None (occurrence: None)
  Receive Date: 20090311
  Receipt Date: 20080909
  Transmission Date: 20090719
  Serious: No
  Sender: FDA-Public Use
  Company Number: US-TYCO HEALTHCARE/MALLINCKRODT-T200801476

PATIENT

DRUGS (10)
  1. ACETAMINOPHEN AND HYDROCODONE BITARTRATE [Suspect]
     Indication: BACK PAIN
     Dosage: 1 TABLET QD
     Route: 048
     Dates: start: 20080827, end: 20080908
  2. ACETAMINOPHEN AND HYDROCODONE BITARTRATE [Suspect]
     Dosage: UNK, SINGLE
     Route: 048
     Dates: start: 20080909, end: 20080909
  3. REMERON [Concomitant]
     Indication: DEPRESSION
     Route: 048
  4. WELLBUTRIN [Concomitant]
     Indication: DEPRESSION
     Route: 048
  5. TRAMADOL HCL [Concomitant]
     Indication: NEUROPATHY PERIPHERAL
     Route: 048
  6. LASIX [Concomitant]
     Indication: FLUID RETENTION
     Route: 048
  7. NOVOLOG [Concomitant]
     Indication: DIABETES MELLITUS
  8. LISINOPRIL [Concomitant]
     Indication: BLOOD PRESSURE
     Route: 048
  9. CARDURA                            /00639301/ [Concomitant]
     Indication: BLOOD PRESSURE
     Route: 048
  10. CORTISONE [Concomitant]
     Indication: BACK PAIN
     Dates: start: 20080825, end: 20080825

REACTIONS (2)
  - DRUG DIVERSION [None]
  - DRUG INEFFECTIVE [None]
